FAERS Safety Report 14764843 (Version 1)
Quarter: 2018Q2

REPORT INFORMATION
  Report Type: Report from Study
  Country: ES (occurrence: ES)
  Receive Date: 20180416
  Receipt Date: 20180416
  Transmission Date: 20180711
  Serious: Yes (Life-Threatening, Hospitalization)
  Sender: FDA-Public Use
  Company Number: ES-TEVA-2018-ES-881791

PATIENT
  Age: 59 Year
  Sex: Female

DRUGS (2)
  1. MIRTAZAPINA (2704A) [Suspect]
     Active Substance: MIRTAZAPINE
     Dates: start: 20160928, end: 20160928
  2. DEPAKINE [Suspect]
     Active Substance: VALPROATE SODIUM
     Dates: start: 20160928, end: 20160928

REACTIONS (4)
  - Suicide attempt [Recovered/Resolved]
  - Depressed level of consciousness [Recovered/Resolved]
  - Tachycardia [Recovered/Resolved]
  - Hypotension [Recovered/Resolved]

NARRATIVE: CASE EVENT DATE: 20160928
